FAERS Safety Report 10740535 (Version 2)
Quarter: 2015Q1

REPORT INFORMATION
  Report Type: Spontaneous
  Country: US (occurrence: US)
  Receive Date: 20150127
  Receipt Date: 20150219
  Transmission Date: 20150721
  Serious: Yes (Other)
  Sender: FDA-Public Use
  Company Number: US-ABBVIE-15K-163-1335612-00

PATIENT
  Age: 61 Year
  Sex: Male
  Weight: 145.28 kg

DRUGS (6)
  1. ASPIRIN. [Concomitant]
     Active Substance: ASPIRIN
     Indication: PRODUCT USED FOR UNKNOWN INDICATION
  2. NAPROXEN. [Suspect]
     Active Substance: NAPROXEN
     Route: 065
     Dates: start: 201502
  3. HUMIRA [Suspect]
     Active Substance: ADALIMUMAB
     Indication: ANKYLOSING SPONDYLITIS
  4. HUMIRA [Suspect]
     Active Substance: ADALIMUMAB
     Indication: CROHN^S DISEASE
     Route: 065
     Dates: start: 2013
  5. NAPROXEN. [Suspect]
     Active Substance: NAPROXEN
     Indication: ANKYLOSING SPONDYLITIS
     Route: 065
     Dates: end: 201502
  6. ATENOLOL. [Concomitant]
     Active Substance: ATENOLOL
     Indication: HYPERTENSION

REACTIONS (20)
  - Carotid artery occlusion [Recovered/Resolved]
  - Large intestine polyp [Unknown]
  - Blood triglycerides increased [Not Recovered/Not Resolved]
  - Post procedural complication [Recovering/Resolving]
  - Vertigo [Recovered/Resolved]
  - Muscle tightness [Not Recovered/Not Resolved]
  - Vocal cord paralysis [Recovering/Resolving]
  - Blood creatinine increased [Not Recovered/Not Resolved]
  - Restlessness [Recovered/Resolved]
  - Injection site haemorrhage [Recovered/Resolved]
  - Tinnitus [Recovered/Resolved]
  - Drug administered at inappropriate site [Unknown]
  - Oedema peripheral [Not Recovered/Not Resolved]
  - Fatigue [Recovered/Resolved]
  - Dizziness [Recovered/Resolved]
  - Dizziness postural [Recovered/Resolved]
  - Vision blurred [Recovered/Resolved]
  - High density lipoprotein decreased [Not Recovered/Not Resolved]
  - Injection site pain [Unknown]
  - Pyrexia [Recovered/Resolved]

NARRATIVE: CASE EVENT DATE: 2013
